FAERS Safety Report 15058870 (Version 3)
Quarter: 2018Q3

REPORT INFORMATION
  Report Type: Spontaneous
  Country: US (occurrence: US)
  Receive Date: 20180625
  Receipt Date: 20180717
  Transmission Date: 20181010
  Serious: No
  Sender: FDA-Public Use
  Company Number: US-GLAXOSMITHKLINE-US2018110672

PATIENT
  Age: 54 Year
  Sex: Female

DRUGS (9)
  1. NUCALA [Suspect]
     Active Substance: MEPOLIZUMAB
     Indication: ASTHMA
     Dosage: UNK UNK, EVERY 4 WEEKS
     Route: 058
     Dates: start: 20170316
  2. CALCIUM WITH MAGNESIUM [Concomitant]
  3. FLONASE [Concomitant]
     Active Substance: FLUTICASONE PROPIONATE
  4. DULERA [Concomitant]
     Active Substance: FORMOTEROL FUMARATE DIHYDRATE\MOMETASONE FUROATE
  5. COENZYME Q10 [Concomitant]
     Active Substance: UBIDECARENONE
  6. PROAIR HFA [Concomitant]
     Active Substance: ALBUTEROL SULFATE
  7. SPIRONOLACTONE. [Concomitant]
     Active Substance: SPIRONOLACTONE
  8. VITAMIN C [Concomitant]
     Active Substance: ASCORBIC ACID
  9. VITAMIN B12 [Concomitant]
     Active Substance: CYANOCOBALAMIN

REACTIONS (15)
  - Ill-defined disorder [Unknown]
  - Drug dose omission [Unknown]
  - Cough [Unknown]
  - Malaise [Unknown]
  - Condition aggravated [Unknown]
  - Product quality issue [Unknown]
  - Chest discomfort [Unknown]
  - Inappropriate schedule of drug administration [Unknown]
  - Increased upper airway secretion [Unknown]
  - Lung disorder [Unknown]
  - Insomnia [Unknown]
  - Drug ineffective [Unknown]
  - Drug effect incomplete [Unknown]
  - Dyspnoea [Unknown]
  - Headache [Unknown]

NARRATIVE: CASE EVENT DATE: 20180620
